FAERS Safety Report 19473370 (Version 1)
Quarter: 2021Q2

REPORT INFORMATION
  Report Type: Spontaneous
  Country: US (occurrence: US)
  Receive Date: 20210629
  Receipt Date: 20210629
  Transmission Date: 20210717
  Serious: No
  Sender: FDA-Public Use
  Company Number: US-PFIZER INC-2021730417

PATIENT
  Age: 60 Year
  Sex: Female
  Weight: 105.69 kg

DRUGS (1)
  1. LYRICA [Suspect]
     Active Substance: PREGABALIN
     Indication: DIABETIC NEUROPATHY
     Dosage: 75 MG, DAILY

REACTIONS (2)
  - Weight decreased [Unknown]
  - Glycosylated haemoglobin abnormal [Unknown]
